FAERS Safety Report 20964028 (Version 1)
Quarter: 2022Q2

REPORT INFORMATION
  Report Type: Spontaneous
  Country: TR (occurrence: TR)
  Receive Date: 20220615
  Receipt Date: 20220615
  Transmission Date: 20220721
  Serious: Yes (Other)
  Sender: FDA-Public Use
  Company Number: TR-PFIZER INC-202200810446

PATIENT
  Age: 16 Year
  Sex: Male

DRUGS (2)
  1. PREGABALIN [Suspect]
     Active Substance: PREGABALIN
     Indication: Euphoric mood
     Dosage: 900 MG, 1X/DAY
  2. PHENPROBAMATE [Suspect]
     Active Substance: PHENPROBAMATE
     Indication: Euphoric mood
     Dosage: UP TO 4 GRAMS

REACTIONS (2)
  - Drug abuse [Unknown]
  - Substance abuse [Unknown]
